FAERS Safety Report 7487175-5 (Version None)
Quarter: 2011Q1

REPORT INFORMATION
  Report Type: 
  Country: None (occurrence: None)
  Receive Date: 20110309
  Receipt Date: 20101216
  Transmission Date: 20110831
  Serious: No
  Sender: FDA-Public Use
  Company Number: 2010SP065089

PATIENT
  Age: 51 Year
  Sex: Female

DRUGS (5)
  1. ZOLOFT [Concomitant]
  2. SAPHRIS [Suspect]
     Indication: BIPOLAR DISORDER
     Dosage: 5 MG; BID; SL
     Route: 060
     Dates: start: 20101130, end: 20101216
  3. SAPHRIS [Suspect]
     Indication: PSYCHOTIC DISORDER
     Dosage: 5 MG; BID; SL
     Route: 060
     Dates: start: 20101130, end: 20101216
  4. NEURONTIN [Concomitant]
  5. VISTARIL [Concomitant]

REACTIONS (2)
  - WEIGHT INCREASED [None]
  - INCREASED APPETITE [None]
